FAERS Safety Report 4719335-8 (Version None)
Quarter: 2005Q3

REPORT INFORMATION
  Report Type: 
  Country: None (occurrence: None)
  Receive Date: 20050721
  Receipt Date: 20050712
  Transmission Date: 20060218
  Serious: Yes (Hospitalization)
  Sender: FDA-Public Use
  Company Number: TH-BOEHRINGER INGELHEIM PHARMACEUTICALS, INC.-2005-BP-11738SG

PATIENT
  Sex: Male
  Weight: 53 kg

DRUGS (3)
  1. NEVIRAPINE [Suspect]
     Indication: HIV INFECTION
     Dates: start: 20001113
  2. D4T STAVUDINE [Suspect]
     Indication: HIV INFECTION
     Route: 048
     Dates: start: 20001113
  3. 3TC LAMIVUDINE (UNK) [Suspect]
     Indication: HIV INFECTION
     Dates: start: 20001113

REACTIONS (4)
  - LACTIC ACIDOSIS [None]
  - LEFT VENTRICULAR FAILURE [None]
  - PNEUMOCYSTIS JIROVECI PNEUMONIA [None]
  - PULMONARY HYPERTENSION [None]
